FAERS Safety Report 15785037 (Version 1)
Quarter: 2019Q1

REPORT INFORMATION
  Report Type: Spontaneous
  Country: US (occurrence: US)
  Receive Date: 20190103
  Receipt Date: 20190103
  Transmission Date: 20190417
  Serious: No
  Sender: FDA-Public Use
  Company Number: US-CELGENEUS-USA-20181208786

PATIENT
  Age: 81 Year
  Sex: Female

DRUGS (2)
  1. OTEZLA [Suspect]
     Active Substance: APREMILAST
     Indication: PSORIASIS
     Dosage: 60 MILLIGRAM
     Route: 048
     Dates: start: 20181218
  2. OTEZLA [Suspect]
     Active Substance: APREMILAST
     Indication: ARTHRITIS
     Dosage: 30 MILLIGRAM
     Route: 048
     Dates: start: 201812

REACTIONS (7)
  - Dizziness [Unknown]
  - Tremor [Unknown]
  - Nausea [Unknown]
  - Muscular weakness [Unknown]
  - Weight abnormal [Unknown]
  - Feeling cold [Unknown]
  - Feeling hot [Unknown]

NARRATIVE: CASE EVENT DATE: 20181223
